FAERS Safety Report 5356390-9 (Version None)
Quarter: 2007Q2

REPORT INFORMATION
  Report Type: 
  Country: None (occurrence: None)
  Receive Date: 20070530
  Receipt Date: 20061214
  Transmission Date: 20071010
  Serious: Yes (Hospitalization, Other)
  Sender: FDA-Public Use
  Company Number: US200609006185

PATIENT
  Age: 48 Year
  Sex: Male
  Weight: 88.4 kg

DRUGS (3)
  1. ZYPREXA [Suspect]
     Dates: start: 20040917, end: 20060511
  2. ARIPIPRAZOLE [Concomitant]
  3. SERTRALINE [Concomitant]

REACTIONS (4)
  - DIABETES MELLITUS [None]
  - DIABETIC COMA [None]
  - DIABETIC KETOACIDOSIS [None]
  - HYPERTENSION [None]
